FAERS Safety Report 26198887 (Version 1)
Quarter: 2025Q4

REPORT INFORMATION
  Report Type: Spontaneous
  Country: US (occurrence: US)
  Receive Date: 20251225
  Receipt Date: 20251225
  Transmission Date: 20260118
  Serious: No
  Sender: DR REDDYS
  Company Number: None

PATIENT
  Age: 25 Year
  Sex: Female

DRUGS (1)
  1. LAMOTRIGINE [Suspect]
     Active Substance: LAMOTRIGINE
     Indication: Bipolar disorder
     Dosage: STABLE DOSE OF LAMOTRIGINE FOR THREE YEARS PRIOR TO PRESENTATION. SHE HAD SELF-TAPERED TO A LOWER DO

REACTIONS (2)
  - Pseudolymphoma [Recovered/Resolved]
  - Product substitution issue [Recovered/Resolved]
